FAERS Safety Report 24795741 (Version 1)
Quarter: 2025Q1

REPORT INFORMATION
  Report Type: Spontaneous
  Country: ES (occurrence: ES)
  Receive Date: 20250101
  Receipt Date: 20250101
  Transmission Date: 20250409
  Serious: Yes (Other)
  Sender: AUROBINDO
  Company Number: ES-AEMPS-1606870

PATIENT
  Age: 44 Year
  Sex: Female

DRUGS (6)
  1. TOPIRAMATE [Suspect]
     Active Substance: TOPIRAMATE
     Indication: Panic disorder
     Dosage: 100 MILLIGRAM, 3 TIMES A DAY (1 TABLET EVERY 8 HOURS)
     Route: 048
     Dates: start: 20210407
  2. QUETIAPINE [Suspect]
     Active Substance: QUETIAPINE
     Indication: Panic disorder
     Dosage: 50 MILLIGRAM, ONCE A DAY (1 TABLET)
     Route: 048
     Dates: start: 20240905, end: 20241208
  3. GABAPENTIN [Concomitant]
     Active Substance: GABAPENTIN
     Indication: Panic disorder
     Dosage: 400 MILLIGRAM, FOUR TIMES/DAY
     Route: 048
     Dates: start: 20240905
  4. FLUOXETINE [Concomitant]
     Active Substance: FLUOXETINE HYDROCHLORIDE
     Indication: Panic disorder
     Dosage: 50 MILLIGRAM, ONCE A DAY
     Route: 048
     Dates: start: 20230124
  5. TRAZODONE [Concomitant]
     Active Substance: TRAZODONE HYDROCHLORIDE
     Indication: Panic disorder
     Dosage: 100 MILLIGRAM, ONCE A DAY
     Route: 048
     Dates: start: 20210407
  6. OMEPRAZOLE [Concomitant]
     Active Substance: OMEPRAZOLE
     Indication: Product used for unknown indication
     Dosage: 40 MILLIGRAM, ONCE A DAY
     Route: 048
     Dates: start: 20160803

REACTIONS (2)
  - Hypokalaemia [Recovered/Resolved]
  - Muscular weakness [Recovered/Resolved]

NARRATIVE: CASE EVENT DATE: 20241208
